FAERS Safety Report 10351704 (Version 1)
Quarter: 2014Q3

REPORT INFORMATION
  Report Type: Spontaneous
  Country: IT (occurrence: IT)
  Receive Date: 20140730
  Receipt Date: 20140730
  Transmission Date: 20150326
  Serious: Yes (Hospitalization, Other)
  Sender: FDA-Public Use
  Company Number: IT-MYLAN-2014S1017455

PATIENT

DRUGS (3)
  1. BROMOCRIPTINE [Suspect]
     Active Substance: BROMOCRIPTINE
     Dosage: 2.5 MG,TID
     Route: 065
  2. BROMOCRIPTINE [Suspect]
     Active Substance: BROMOCRIPTINE
     Indication: SECRETORY ADENOMA OF PITUITARY
     Dosage: 5 MG,BID
     Route: 065
  3. CABERGOLINE. [Suspect]
     Active Substance: CABERGOLINE
     Indication: SECRETORY ADENOMA OF PITUITARY
     Dosage: .5 MG,QD
     Route: 065

REACTIONS (11)
  - Mitral valve incompetence [Recovered/Resolved]
  - Cardiac failure acute [Recovered/Resolved]
  - Cardiogenic shock [None]
  - Ventricular hypokinesia [None]
  - Cardiomegaly [None]
  - Respiratory acidosis [None]
  - Hypercapnia [None]
  - Pulmonary arterial hypertension [None]
  - Acute pulmonary oedema [None]
  - Pleural effusion [None]
  - Tricuspid valve incompetence [Recovering/Resolving]
